FAERS Safety Report 6919494-2 (Version None)
Quarter: 2010Q3

REPORT INFORMATION
  Report Type: 
  Country: None (occurrence: None)
  Receive Date: 20100811
  Receipt Date: 20100730
  Transmission Date: 20110219
  Serious: Yes (Hospitalization)
  Sender: FDA-Public Use
  Company Number: JP-CELGENEUS-087-C5013-10061821

PATIENT
  Sex: Male
  Weight: 66.8 kg

DRUGS (15)
  1. LENALIDOMIDE [Suspect]
     Indication: MULTIPLE MYELOMA
     Route: 048
     Dates: start: 20091116, end: 20100530
  2. DEXAMETHASONE [Suspect]
     Indication: MULTIPLE MYELOMA
     Route: 065
     Dates: start: 20091116, end: 20100525
  3. ANTIBIOTIC [Concomitant]
     Indication: CHOLECYSTITIS
     Route: 051
     Dates: start: 20100606, end: 20100615
  4. SUCRALFATE HYDRATE [Concomitant]
     Route: 048
     Dates: start: 20100607
  5. LEVOFLOXACIN HYDORATE [Concomitant]
     Indication: PNEUMONIA
     Route: 048
     Dates: start: 20100531, end: 20100605
  6. UREA [Concomitant]
     Indication: DRY SKIN
     Dosage: OPTIMAL DOSE
     Route: 061
     Dates: start: 20100112
  7. KETOPROFEN [Concomitant]
     Dosage: OPTIMAL SHEET
     Route: 062
     Dates: start: 20091130
  8. PANTETHINE [Concomitant]
     Indication: CONSTIPATION
     Route: 048
     Dates: start: 20091207
  9. COTRIM [Concomitant]
     Route: 048
     Dates: start: 20091116
  10. MAGNESIUM OXIDE [Concomitant]
     Indication: CONSTIPATION
     Route: 048
     Dates: start: 20091207
  11. LOXOPROFEN SODIUM HYDRATE [Concomitant]
     Indication: HEADACHE
     Route: 048
     Dates: start: 20100607, end: 20100608
  12. ACETAMINOPHEN [Concomitant]
     Route: 048
     Dates: start: 20100530, end: 20100531
  13. PATANOL [Concomitant]
     Indication: CONJUNCTIVITIS
     Dosage: OPTIMAL DOSE
     Route: 031
     Dates: start: 20100112
  14. BETAMETHASONE BUTYRATE PROPIONATE [Concomitant]
     Dosage: OPTIMAL DOSE
     Route: 061
     Dates: start: 20100305
  15. ASPIRIN [Concomitant]
     Route: 048
     Dates: start: 20091116

REACTIONS (1)
  - GASTRIC CANCER [None]
